FAERS Safety Report 10006895 (Version 1)
Quarter: 2014Q1

REPORT INFORMATION
  Report Type: Spontaneous
  Country: US (occurrence: None)
  Receive Date: 20140312
  Receipt Date: 20140312
  Transmission Date: 20141002
  Serious: Yes (Hospitalization, Disabling, Congenital Anomaly)
  Sender: FDA-Public Use
  Company Number: None

PATIENT
  Sex: Male
  Weight: 19.05 kg

DRUGS (2)
  1. DEPAKOTE [Suspect]
     Indication: EPILEPSY
     Route: 048
  2. DEPAKOTE [Suspect]
     Indication: GRAND MAL CONVULSION
     Route: 048

REACTIONS (2)
  - Foetal anticonvulsant syndrome [None]
  - Maternal drugs affecting foetus [None]
